FAERS Safety Report 4280069-8 (Version None)
Quarter: 2004Q1

REPORT INFORMATION
  Report Type: 
  Country: None (occurrence: None)
  Receive Date: 20040123
  Receipt Date: 20040109
  Transmission Date: 20041129
  Serious: Yes (Death, Hospitalization)
  Sender: FDA-Public Use
  Company Number: PHRM2004FR00478

PATIENT
  Age: 71 Year
  Sex: Female

DRUGS (4)
  1. VISUDYNE [Suspect]
     Indication: MACULAR DEGENERATION
     Dates: start: 20031015, end: 20031015
  2. INFLUENZA VIRUS VACCINE [Suspect]
     Indication: INFLUENZA IMMUNISATION
     Dates: start: 20031023, end: 20031023
  3. LEVOTHYROXINE SODIUM [Concomitant]
  4. TENORMIN [Concomitant]

REACTIONS (8)
  - CHOLESTASIS [None]
  - CYTOLYTIC HEPATITIS [None]
  - HEPATIC FAILURE [None]
  - LEUKOPENIA [None]
  - MULTI-ORGAN FAILURE [None]
  - PANCYTOPENIA [None]
  - RESPIRATORY DISTRESS [None]
  - THROMBOCYTOPENIA [None]
